FAERS Safety Report 6722529-3 (Version None)
Quarter: 2010Q2

REPORT INFORMATION
  Report Type: 
  Country: None (occurrence: None)
  Receive Date: 20100512
  Receipt Date: 20100506
  Transmission Date: 20101027
  Serious: Yes (Hospitalization)
  Sender: FDA-Public Use
  Company Number: CO-ROCHE-701585

PATIENT
  Sex: Male

DRUGS (2)
  1. AVASTIN [Suspect]
     Indication: COLORECTAL CANCER
     Dosage: LAST INFUSION: 23 MARCH 2010, FORM : INFUSION
     Route: 042
     Dates: start: 20090707, end: 20100323
  2. XELODA [Suspect]
     Indication: COLORECTAL CANCER
     Route: 048
     Dates: start: 20090707

REACTIONS (1)
  - PLEURAL EFFUSION [None]
